FAERS Safety Report 26137140 (Version 2)
Quarter: 2025Q4

REPORT INFORMATION
  Report Type: Spontaneous
  Country: US (occurrence: US)
  Receive Date: 20251209
  Receipt Date: 20251229
  Transmission Date: 20260117
  Serious: Yes (Hospitalization, Other)
  Sender: VERTEX
  Company Number: US-VERTEX PHARMACEUTICALS-2025-020359

PATIENT
  Age: 15 Year
  Sex: Female

DRUGS (6)
  1. ELEXACAFTOR\IVACAFTOR\TEZACAFTOR [Suspect]
     Active Substance: ELEXACAFTOR\IVACAFTOR\TEZACAFTOR
     Indication: Cystic fibrosis
     Dosage: UNKNOWN DOSAGE REGIMEN
     Route: 061
  2. ELEXACAFTOR\IVACAFTOR\TEZACAFTOR [Suspect]
     Active Substance: ELEXACAFTOR\IVACAFTOR\TEZACAFTOR
     Indication: Cough
  3. ELEXACAFTOR\IVACAFTOR\TEZACAFTOR [Suspect]
     Active Substance: ELEXACAFTOR\IVACAFTOR\TEZACAFTOR
     Indication: Cystic fibrosis related diabetes
  4. PREDNISOLONE [Suspect]
     Active Substance: PREDNISOLONE
     Indication: Cough
     Dosage: UNKNOWN DOSAGE REGIMEN
     Route: 065
  5. PREDNISOLONE [Suspect]
     Active Substance: PREDNISOLONE
     Indication: Cystic fibrosis
  6. PREDNISOLONE [Suspect]
     Active Substance: PREDNISOLONE
     Indication: Cystic fibrosis related diabetes

REACTIONS (4)
  - Diabetic ketoacidosis [Unknown]
  - Off label use [Unknown]
  - Cystic fibrosis related diabetes [Unknown]
  - Cough [Unknown]
